FAERS Safety Report 10557368 (Version 2)
Quarter: 2014Q4

REPORT INFORMATION
  Report Type: Spontaneous
  Country: JP (occurrence: JP)
  Receive Date: 20141031
  Receipt Date: 20141119
  Transmission Date: 20150529
  Serious: Yes (Death, Disabling)
  Sender: FDA-Public Use
  Company Number: JP-ELI_LILLY_AND_COMPANY-JP201410010501

PATIENT
  Age: 65 Year
  Sex: Male

DRUGS (8)
  1. LIMAS [Suspect]
     Active Substance: LITHIUM CARBONATE
     Indication: BIPOLAR DISORDER
     Dosage: UNK MG, UNK
     Route: 048
     Dates: end: 20140917
  2. FLUDECASIN [Suspect]
     Active Substance: FLUPHENAZINE DECANOATE
     Indication: BIPOLAR DISORDER
     Dosage: 25 MG, UNK
     Route: 030
     Dates: start: 20140916
  3. ROHYPNOL [Concomitant]
     Active Substance: FLUNITRAZEPAM
     Indication: PRODUCT USED FOR UNKNOWN INDICATION
     Dosage: 2 MG, QD
     Route: 065
  4. AKINETON [Concomitant]
     Active Substance: BIPERIDEN HYDROCHLORIDE
     Indication: PRODUCT USED FOR UNKNOWN INDICATION
     Dosage: 1 MG, BID
     Route: 065
  5. EURODIN                            /00425901/ [Concomitant]
     Active Substance: ESTAZOLAM
     Indication: PRODUCT USED FOR UNKNOWN INDICATION
     Dosage: 2 MG, BID
     Route: 065
  6. ZYPREXA [Suspect]
     Active Substance: OLANZAPINE
     Indication: BIPOLAR DISORDER
     Dosage: UNK
     Route: 048
     Dates: start: 20111006
  7. LIMAS [Suspect]
     Active Substance: LITHIUM CARBONATE
     Dosage: 200 MG, BID
     Route: 048
     Dates: start: 20140918
  8. RIVOTRIL [Concomitant]
     Active Substance: CLONAZEPAM
     Indication: PRODUCT USED FOR UNKNOWN INDICATION
     Dosage: 2 G, QD
     Route: 065

REACTIONS (6)
  - Dysphagia [Not Recovered/Not Resolved]
  - Cardiac failure [Fatal]
  - Sudden death [Fatal]
  - Decreased appetite [Unknown]
  - Dyskinesia [Not Recovered/Not Resolved]
  - Abulia [Unknown]

NARRATIVE: CASE EVENT DATE: 20140901
